FAERS Safety Report 10862451 (Version 3)
Quarter: 2015Q1

REPORT INFORMATION
  Report Type: Report from Study
  Country: US (occurrence: US)
  Receive Date: 20150224
  Receipt Date: 20150310
  Transmission Date: 20150721
  Serious: Yes (Hospitalization)
  Sender: FDA-Public Use
  Company Number: US-GILEAD-2015-0138601

PATIENT
  Age: 56 Year
  Sex: Female

DRUGS (3)
  1. ADCIRCA [Concomitant]
     Active Substance: TADALAFIL
  2. AMBRISENTAN [Suspect]
     Active Substance: AMBRISENTAN
     Indication: PRODUCT USED FOR UNKNOWN INDICATION
     Dosage: 10 MG, QD
     Route: 065
     Dates: start: 20140612
  3. VENTAVIS [Concomitant]
     Active Substance: ILOPROST

REACTIONS (8)
  - Mouth haemorrhage [Unknown]
  - Epistaxis [Unknown]
  - Blood count abnormal [Unknown]
  - Ammonia increased [Unknown]
  - Haematochezia [Unknown]
  - Confusional state [Unknown]
  - Lethargy [Unknown]
  - Anaemia [Unknown]
